FAERS Safety Report 5245808-8 (Version None)
Quarter: 2007Q1

REPORT INFORMATION
  Report Type: 
  Country: None (occurrence: None)
  Receive Date: 20070216
  Receipt Date: 20070205
  Transmission Date: 20070707
  Serious: Yes (Death, Hospitalization)
  Sender: FDA-Public Use
  Company Number: 2007BI002597

PATIENT
  Age: 53 Year
  Sex: Female

DRUGS (11)
  1. NATALIZUMAB [Suspect]
     Indication: MULTIPLE SCLEROSIS
     Dosage: 300 MG;QM;IV
     Route: 042
     Dates: start: 20061207, end: 20070104
  2. CELEXA [Concomitant]
  3. AMANTADINE HCL [Concomitant]
  4. ZOCOR [Concomitant]
  5. ACTOS [Concomitant]
  6. BENADRYL [Concomitant]
  7. LAMICTAL [Concomitant]
  8. SEROQUEL [Concomitant]
  9. FENTANYL TRANSDERMAL SYSTEM [Concomitant]
  10. NIFEREX [Concomitant]
  11. COLACE [Concomitant]

REACTIONS (10)
  - ANAEMIA [None]
  - ASTHENIA [None]
  - CARDIAC ARREST [None]
  - HALLUCINATION [None]
  - MYOCARDIAL INFARCTION [None]
  - PLATELET COUNT DECREASED [None]
  - STAPHYLOCOCCAL INFECTION [None]
  - STRESS [None]
  - TREMOR [None]
  - URINARY TRACT INFECTION STAPHYLOCOCCAL [None]
